FAERS Safety Report 8261223-7 (Version None)
Quarter: 2012Q2

REPORT INFORMATION
  Report Type: 
  Country: None (occurrence: None)
  Receive Date: 20120405
  Receipt Date: 20120326
  Transmission Date: 20120825
  Serious: Yes (Hospitalization)
  Sender: FDA-Public Use
  Company Number: US-ELI_LILLY_AND_COMPANY-US201203008089

PATIENT
  Sex: Female

DRUGS (3)
  1. HUMALOG [Suspect]
     Dosage: 8 U, PRN
     Dates: start: 20050101
  2. PREDNISONE TAB [Concomitant]
     Dosage: UNK
     Dates: start: 20050101
  3. HUMALOG [Suspect]
     Indication: DIABETES MELLITUS
     Dosage: 8 U, PRN
     Dates: start: 20050101

REACTIONS (5)
  - VIRAL INFECTION [None]
  - THROMBOSIS [None]
  - PNEUMONIA [None]
  - AUTOIMMUNE DISORDER [None]
  - CELLULITIS [None]
